FAERS Safety Report 6179368-4 (Version None)
Quarter: 2009Q2

REPORT INFORMATION
  Report Type: 
  Country: None (occurrence: None)
  Receive Date: 20090505
  Receipt Date: 20090430
  Transmission Date: 20091009
  Serious: Yes (Death, Hospitalization)
  Sender: FDA-Public Use
  Company Number: CH-ABBOTT-09P-151-0570814-00

PATIENT
  Age: 65 Year
  Sex: Male

DRUGS (12)
  1. KLACID [Suspect]
     Indication: PYREXIA
     Route: 048
     Dates: start: 20090216
  2. KLACID [Suspect]
  3. AMLODIPINE BESYLATE [Suspect]
     Indication: DRUG USE FOR UNKNOWN INDICATION
     Route: 048
     Dates: start: 20080101, end: 20090218
  4. ROCEPHIN [Concomitant]
     Indication: LUNG INFECTION
     Route: 042
     Dates: start: 20090216, end: 20090218
  5. ROCEPHIN [Concomitant]
  6. TIENAM [Concomitant]
     Indication: DRUG USE FOR UNKNOWN INDICATION
     Route: 042
     Dates: start: 20090218
  7. KONAKION [Concomitant]
     Indication: DRUG USE FOR UNKNOWN INDICATION
     Route: 042
  8. FOLVIT [Concomitant]
     Indication: DRUG USE FOR UNKNOWN INDICATION
     Route: 048
  9. ASPIRIN [Concomitant]
     Indication: DRUG USE FOR UNKNOWN INDICATION
     Route: 048
  10. NEXIUM [Concomitant]
     Indication: DRUG USE FOR UNKNOWN INDICATION
     Route: 048
  11. MOTILIUM [Concomitant]
     Indication: DRUG USE FOR UNKNOWN INDICATION
     Route: 048
  12. CLEXANE [Concomitant]
     Indication: DRUG USE FOR UNKNOWN INDICATION
     Route: 058
     Dates: end: 20090217

REACTIONS (8)
  - CONDITION AGGRAVATED [None]
  - HAEMODYNAMIC INSTABILITY [None]
  - METABOLIC ACIDOSIS [None]
  - RESPIRATORY ARREST [None]
  - RESPIRATORY FATIGUE [None]
  - SEPSIS [None]
  - SHOCK [None]
  - TACHYPNOEA [None]
